APPROVED DRUG PRODUCT: MINTEZOL
Active Ingredient: THIABENDAZOLE
Strength: 500MG
Dosage Form/Route: TABLET, CHEWABLE;ORAL
Application: N016096 | Product #001
Applicant: MERCK SHARP AND DOHME CORP
Approved: Approved Prior to Jan 1, 1982 | RLD: No | RS: No | Type: DISCN